FAERS Safety Report 8163869-3 (Version None)
Quarter: 2012Q1

REPORT INFORMATION
  Report Type: 
  Country: None (occurrence: None)
  Receive Date: 20120224
  Receipt Date: 20120223
  Transmission Date: 20120608
  Serious: Yes (Other)
  Sender: FDA-Public Use
  Company Number: PHHY2012CN013640

PATIENT
  Age: 88 Year
  Sex: Female

DRUGS (1)
  1. DIOVAN [Suspect]
     Indication: HYPERTENSION
     Dosage: 80 MG, DAILY
     Route: 048
     Dates: start: 20110501

REACTIONS (3)
  - FATIGUE [None]
  - IRON DEFICIENCY ANAEMIA [None]
  - HAEMOGLOBIN DECREASED [None]
